FAERS Safety Report 5223757-9 (Version None)
Quarter: 2007Q1

REPORT INFORMATION
  Report Type: 
  Country: None (occurrence: None)
  Receive Date: 20070125
  Receipt Date: 20070115
  Transmission Date: 20070707
  Serious: Yes (Hospitalization)
  Sender: FDA-Public Use
  Company Number: HQWYE752218JAN07

PATIENT
  Age: 31 Year
  Sex: Female

DRUGS (1)
  1. EFFEXOR [Suspect]
     Dosage: OVERDOSE AMOUNT:  1500 MG
     Dates: start: 20000301, end: 20000301

REACTIONS (2)
  - HYPERTHERMIA [None]
  - OVERDOSE [None]
